FAERS Safety Report 24925605 (Version 1)
Quarter: 2025Q1

REPORT INFORMATION
  Report Type: Spontaneous
  Country: US (occurrence: US)
  Receive Date: 20250204
  Receipt Date: 20250204
  Transmission Date: 20250409
  Serious: No
  Sender: ROCHE
  Company Number: US-ROCHE-10000197616

PATIENT
  Sex: Female

DRUGS (11)
  1. ACTEMRA ACTPEN [Suspect]
     Active Substance: TOCILIZUMAB
     Indication: Rheumatoid arthritis
     Route: 058
     Dates: start: 20240101
  2. AMLODIPINE [Concomitant]
     Active Substance: AMLODIPINE BESYLATE
  3. ASPIRIN TBE 81MG [Concomitant]
  4. CALCIUM + D CHE 500-1000M [Concomitant]
  5. LIDOCAINE PTC 5% [Concomitant]
  6. LISINOPRIL TAB 40MG [Concomitant]
  7. OMEGA 3 CAP 1200MG [Concomitant]
  8. SPIRIVA RESP AER 2.5MCG/A [Concomitant]
  9. TYLENOL CAP 325MG [Concomitant]
  10. VENTOLIN ??? AER 108 (90 [Concomitant]
  11. VOLTAREN GEL 1 [Concomitant]

REACTIONS (2)
  - Drug ineffective [Not Recovered/Not Resolved]
  - No adverse event [Unknown]
